FAERS Safety Report 8010796-8 (Version None)
Quarter: 2011Q4

REPORT INFORMATION
  Report Type: 
  Country: None (occurrence: None)
  Receive Date: 20111228
  Receipt Date: 20111219
  Transmission Date: 20120403
  Serious: Yes (Other)
  Sender: FDA-Public Use
  Company Number: US-JNJFOC-20111109558

PATIENT
  Sex: Male
  Weight: 81.65 kg

DRUGS (3)
  1. REMICADE [Suspect]
     Indication: RHEUMATOID ARTHRITIS
     Route: 042
     Dates: start: 20020101, end: 20111108
  2. WARFARIN SODIUM [Concomitant]
     Route: 048
     Dates: start: 19950101
  3. WARFARIN SODIUM [Concomitant]
     Indication: THROMBOSIS
     Route: 048
     Dates: start: 19950101

REACTIONS (18)
  - SWOLLEN TONGUE [None]
  - BLOOD CHOLESTEROL INCREASED [None]
  - WEIGHT DECREASED [None]
  - BACK PAIN [None]
  - DECREASED APPETITE [None]
  - RHINORRHOEA [None]
  - CHEST PAIN [None]
  - MUSCULAR WEAKNESS [None]
  - TONGUE NEOPLASM [None]
  - TONGUE COATED [None]
  - ABDOMINAL PAIN UPPER [None]
  - PANCREATIC DISORDER [None]
  - ORAL MUCOSAL DISCOLOURATION [None]
  - DYSPEPSIA [None]
  - NAUSEA [None]
  - VISION BLURRED [None]
  - ARTHRALGIA [None]
  - DEPRESSION [None]
